FAERS Safety Report 5641710-8 (Version None)
Quarter: 2008Q1

REPORT INFORMATION
  Report Type: 
  Country: None (occurrence: None)
  Receive Date: 20080227
  Receipt Date: 20080220
  Transmission Date: 20080703
  Serious: Yes (Hospitalization)
  Sender: FDA-Public Use
  Company Number: AU-GENENTECH-239567

PATIENT
  Sex: Male

DRUGS (3)
  1. BEVACIZUMAB [Suspect]
     Indication: COLORECTAL CANCER METASTATIC
     Dosage: 7.5 MG/M2, Q3W
     Route: 042
     Dates: start: 20070305
  2. CAPECITABINE [Suspect]
     Indication: COLORECTAL CANCER METASTATIC
     Dosage: 2500 MG/M2, UNK
     Route: 048
     Dates: start: 20070305
  3. MITOMYCIN [Suspect]
     Indication: COLORECTAL CANCER METASTATIC
     Dosage: 7 MG/M2, Q6W
     Route: 042
     Dates: start: 20070305

REACTIONS (2)
  - DIARRHOEA [None]
  - NAUSEA [None]
